FAERS Safety Report 11753986 (Version 2)
Quarter: 2015Q4

REPORT INFORMATION
  Report Type: Report from Study
  Country: US (occurrence: US)
  Receive Date: 20151119
  Receipt Date: 20151210
  Transmission Date: 20160304
  Serious: Yes (Other)
  Sender: FDA-Public Use
  Company Number: US-BAYER-2015-384215

PATIENT
  Age: 65 Year
  Sex: Male

DRUGS (6)
  1. MORPHINE SULFATE. [Concomitant]
     Active Substance: MORPHINE SULFATE
     Dosage: 15 MG, QID PRN
     Route: 048
  2. FEXOFENADINE HYDROCHLORIDE. [Concomitant]
     Active Substance: FEXOFENADINE HYDROCHLORIDE
     Dosage: 30 MG TABLET
     Route: 048
  3. TRAZODONE [Concomitant]
     Active Substance: TRAZODONE HYDROCHLORIDE
     Dosage: 50 MG, QD BEFORE SLEEP
  4. STIVARGA [Suspect]
     Active Substance: REGORAFENIB
     Indication: RECTAL CANCER
     Dosage: 160 MG, QD FOR 21 DAYS 28 DAY CYCLE
     Route: 048
     Dates: start: 20150622, end: 20150811
  5. FLUTICASONE [Concomitant]
     Active Substance: FLUTICASONE\FLUTICASONE PROPIONATE
     Dosage: 100-25 MCG/DOSE
  6. STIVARGA [Suspect]
     Active Substance: REGORAFENIB
     Indication: RECTAL CANCER
     Dosage: 120MG, QD; TOTAL DAILY DOSE: 120 MG
     Route: 048
     Dates: start: 20150812

REACTIONS (13)
  - Eructation [Not Recovered/Not Resolved]
  - Nausea [Recovered/Resolved]
  - Diarrhoea [Not Recovered/Not Resolved]
  - Oral pain [None]
  - Respiratory muscle weakness [None]
  - Dyspnoea [Recovering/Resolving]
  - Chronic obstructive pulmonary disease [None]
  - Hypersomnia [None]
  - Stomatitis [Recovered/Resolved]
  - Fatigue [None]
  - Blister [None]
  - Asthma [None]
  - Decreased appetite [None]

NARRATIVE: CASE EVENT DATE: 20150720
